FAERS Safety Report 8037377-4 (Version None)
Quarter: 2012Q1

REPORT INFORMATION
  Report Type: 
  Country: None (occurrence: None)
  Receive Date: 20120111
  Receipt Date: 20120104
  Transmission Date: 20120608
  Serious: No
  Sender: FDA-Public Use
  Company Number: US-B.I. PHARMACEUTICALS,INC./RIDGEFIELD-2011-BP-27523BP

PATIENT
  Age: 68 Year
  Sex: Female
  Weight: 44.91 kg

DRUGS (3)
  1. PROAIR HFA [Concomitant]
     Dates: start: 20111129
  2. SYMBICORT [Concomitant]
  3. SPIRIVA [Suspect]
     Indication: CHRONIC OBSTRUCTIVE PULMONARY DISEASE
     Dosage: 18 MCG
     Route: 055
     Dates: start: 20111129, end: 20111201

REACTIONS (5)
  - CHEST DISCOMFORT [None]
  - DYSPNOEA [None]
  - ORAL PAIN [None]
  - RASH [None]
  - THROAT TIGHTNESS [None]
